FAERS Safety Report 8355985-8 (Version None)
Quarter: 2012Q2

REPORT INFORMATION
  Report Type: 
  Country: None (occurrence: None)
  Receive Date: 20120511
  Receipt Date: 20120511
  Transmission Date: 20120825
  Serious: Yes (Other)
  Sender: FDA-Public Use
  Company Number: None

PATIENT
  Age: 24 Year
  Sex: Male
  Weight: 90.7194 kg

DRUGS (1)
  1. MEFLOQUINE HCL 250MG ROXANE [Suspect]
     Indication: MALARIA PROPHYLAXIS
     Dosage: 1 TAB 250MG ONCE WEEKLY PO
     Route: 048
     Dates: start: 20110608, end: 20110615

REACTIONS (8)
  - MEMORY IMPAIRMENT [None]
  - LEGAL PROBLEM [None]
  - CONVULSION [None]
  - BELLIGERENCE [None]
  - CONFUSIONAL STATE [None]
  - LOSS OF CONSCIOUSNESS [None]
  - ABNORMAL DREAMS [None]
  - PSYCHOTIC DISORDER [None]
